FAERS Safety Report 10469300 (Version 1)
Quarter: 2014Q3

REPORT INFORMATION
  Report Type: Spontaneous
  Country: US (occurrence: None)
  Receive Date: 20140903
  Receipt Date: 20140903
  Transmission Date: 20150326
  Serious: Yes (Other)
  Sender: FDA-Public Use
  Company Number: 2014-000629

PATIENT

DRUGS (1)
  1. ASACOL HD [Suspect]
     Active Substance: MESALAMINE
     Route: 048

REACTIONS (1)
  - Pancreatitis [None]
